FAERS Safety Report 5471038-0 (Version None)
Quarter: 2007Q3

REPORT INFORMATION
  Report Type: 
  Country: None (occurrence: None)
  Receive Date: 20070928
  Receipt Date: 20070924
  Transmission Date: 20080115
  Serious: Yes (Hospitalization)
  Sender: FDA-Public Use
  Company Number: B0488904A

PATIENT
  Age: 35 Year
  Sex: Male

DRUGS (1)
  1. AUGMENTIN '125' [Suspect]
     Indication: OTITIS MEDIA ACUTE
     Dosage: 1G TWICE PER DAY
     Route: 048
     Dates: start: 20070901, end: 20070908

REACTIONS (4)
  - ANGIOEDEMA [None]
  - DYSPNOEA [None]
  - RASH ERYTHEMATOUS [None]
  - RASH PAPULAR [None]
